FAERS Safety Report 6038473-3 (Version None)
Quarter: 2009Q1

REPORT INFORMATION
  Report Type: 
  Country: None (occurrence: None)
  Receive Date: 20090114
  Receipt Date: 20090114
  Transmission Date: 20090719
  Serious: Yes (Hospitalization)
  Sender: FDA-Public Use
  Company Number: None

PATIENT
  Age: 67 Year
  Sex: Male

DRUGS (1)
  1. WARFARIN SODIUM [Suspect]
     Dates: start: 20081201, end: 20081205

REACTIONS (3)
  - HAEMORRHAGE [None]
  - LABORATORY TEST ABNORMAL [None]
  - RENAL HAEMATOMA [None]
